FAERS Safety Report 13687360 (Version 1)
Quarter: 2017Q2

REPORT INFORMATION
  Report Type: Other
  Country: GB (occurrence: US)
  Receive Date: 20170623
  Receipt Date: 20170623
  Transmission Date: 20170830
  Serious: Yes (Other)
  Sender: FDA-Public Use
  Company Number: US-INTERNATIONAL MEDICATION SYSTEMS, LIMITED-2022475

PATIENT

DRUGS (2)
  1. GLUCOSE [Suspect]
     Active Substance: DEXTROSE
     Route: 042
  2. SPIRONOLACTONE. [Suspect]
     Active Substance: SPIRONOLACTONE

REACTIONS (2)
  - Cardiac arrest [Unknown]
  - Hyperkalaemia [Unknown]
